FAERS Safety Report 7632244-X (Version None)
Quarter: 2011Q3

REPORT INFORMATION
  Report Type: 
  Country: None (occurrence: None)
  Receive Date: 20110725
  Receipt Date: 20100702
  Transmission Date: 20111222
  Serious: Yes (Other)
  Sender: FDA-Public Use
  Company Number: US-BRISTOL-MYERS SQUIBB COMPANY-15177272

PATIENT
  Age: 87 Year
  Sex: Female

DRUGS (8)
  1. COUMADIN [Suspect]
     Dosage: 1 DF=4 MG FOR 4 DAYS AND 3 MG THE REST OF THE WEEK FOR 10 YEARS
  2. CARVEDILOL [Concomitant]
  3. LIPITOR [Concomitant]
  4. DIOVAN [Concomitant]
  5. SYMBICORT [Concomitant]
     Route: 055
  6. LASIX [Concomitant]
  7. POTASSIUM [Concomitant]
  8. CALCIUM CARBONATE [Concomitant]

REACTIONS (3)
  - CYANOSIS [None]
  - ERYTHEMA [None]
  - PAIN IN EXTREMITY [None]
